FAERS Safety Report 8281469-1 (Version None)
Quarter: 2012Q2

REPORT INFORMATION
  Report Type: 
  Country: None (occurrence: None)
  Receive Date: 20120413
  Receipt Date: 20120411
  Transmission Date: 20120825
  Serious: Yes (Other)
  Sender: FDA-Public Use
  Company Number: US-PFIZER INC-2012090625

PATIENT
  Sex: Female
  Weight: 90.703 kg

DRUGS (2)
  1. HYDROCODONE BITARTRATE [Suspect]
     Indication: PAIN
     Dosage: THREE TABLETS OF ^10/650^ DAILY
     Route: 048
     Dates: end: 20120101
  2. XANAX [Suspect]
     Indication: ANXIETY
     Dosage: 1 MG, 2X/DAY
     Route: 048

REACTIONS (6)
  - COGNITIVE DISORDER [None]
  - LETHARGY [None]
  - WEIGHT INCREASED [None]
  - DEPRESSED LEVEL OF CONSCIOUSNESS [None]
  - PAIN [None]
  - INCOHERENT [None]
